FAERS Safety Report 9682462 (Version 2)
Quarter: 2013Q4

REPORT INFORMATION
  Report Type: Spontaneous
  Country: CH (occurrence: CH)
  Receive Date: 20131112
  Receipt Date: 20131122
  Transmission Date: 20140711
  Serious: Yes (Other)
  Sender: FDA-Public Use
  Company Number: CH-JNJFOC-20131105864

PATIENT
  Age: 39 Year
  Sex: Male

DRUGS (2)
  1. REMICADE [Suspect]
     Indication: CROHN^S DISEASE
     Dosage: 5 INFUSIONS IN TOTAL
     Route: 042
  2. PREDNISONE [Concomitant]
     Route: 065

REACTIONS (1)
  - Hodgkin^s disease nodular sclerosis stage II [Unknown]
